FAERS Safety Report 5790892-6 (Version None)
Quarter: 2008Q2

REPORT INFORMATION
  Report Type: 
  Country: None (occurrence: None)
  Receive Date: 20080626
  Receipt Date: 20080508
  Transmission Date: 20081010
  Serious: No
  Sender: FDA-Public Use
  Company Number: A0727023A

PATIENT
  Sex: Female

DRUGS (1)
  1. ALLI [Suspect]
     Indication: DRUG USE FOR UNKNOWN INDICATION

REACTIONS (8)
  - ABDOMINAL DISTENSION [None]
  - ADVERSE REACTION [None]
  - ANOREXIA [None]
  - FLATULENCE [None]
  - GASTRIC DISORDER [None]
  - ILL-DEFINED DISORDER [None]
  - MALAISE [None]
  - WEIGHT INCREASED [None]
